FAERS Safety Report 6033868-6 (Version None)
Quarter: 2009Q1

REPORT INFORMATION
  Report Type: 
  Country: None (occurrence: None)
  Receive Date: 20090112
  Receipt Date: 20090106
  Transmission Date: 20090719
  Serious: Yes (Life-Threatening, Other)
  Sender: FDA-Public Use
  Company Number: NL-BRISTOL-MYERS SQUIBB COMPANY-14462949

PATIENT
  Sex: Female

DRUGS (7)
  1. CYCLOPHOSPHAMIDE [Suspect]
     Route: 064
  2. VINCRISTINE SULFATE [Suspect]
     Dosage: 12 PER CYCLE
     Route: 064
  3. ASPARAGINASE [Suspect]
     Route: 064
  4. DAUNORUBICIN HCL [Suspect]
     Route: 064
  5. MERCAPTOPURINE [Suspect]
     Route: 064
  6. PREDNISONE TAB [Suspect]
     Route: 064
  7. METHOTREXATE [Suspect]
     Route: 064

REACTIONS (2)
  - BONE MARROW FAILURE [None]
  - CARDIAC FAILURE CONGESTIVE [None]
